FAERS Safety Report 5406803-9 (Version None)
Quarter: 2007Q3

REPORT INFORMATION
  Report Type: 
  Country: None (occurrence: None)
  Receive Date: 20070802
  Receipt Date: 20070720
  Transmission Date: 20080115
  Serious: Yes (Life-Threatening)
  Sender: FDA-Public Use
  Company Number: 015#3#2007-00008

PATIENT
  Age: 83 Year
  Sex: Female

DRUGS (9)
  1. NEUPRO-2MG/24H (ROTIGOTINE) [Suspect]
     Indication: PARKINSON'S DISEASE
     Dosage: 2 MG/24H TRANSDERMAL
     Route: 062
     Dates: start: 20070514, end: 20070520
  2. DILUTOL (TORASEMIDE) [Suspect]
     Indication: ESSENTIAL HYPERTENSION
     Dosage: 5 MG ORAL
     Route: 048
     Dates: start: 20070516, end: 20070520
  3. CEFUROXIME AXETIL [Suspect]
     Indication: PYREXIA
     Dosage: 1 G ORAL
     Route: 048
     Dates: start: 20070519, end: 20070520
  4. AMERIDE (AMILORIDE HYDROCHLORIDE, HYDROCHLOROTHIAZIDE) [Suspect]
     Dosage: 100 MG ORAL
     Route: 048
  5. RISPERDAL [Suspect]
     Indication: SENILE DEMENTIA
     Dosage: ORAL
     Route: 048
     Dates: end: 20070514
  6. PROMETAX (RIVASTIGMINE) [Concomitant]
  7. OMEPRAZOLE [Concomitant]
  8. LOFTON (BUFLOMEDIL HYDROCHLORIDE) [Concomitant]
  9. ACETYLSALICYLIC ACID SRT [Concomitant]

REACTIONS (3)
  - ANTIDIURETIC HORMONE ABNORMALITY [None]
  - CONSTIPATION [None]
  - HYPONATRAEMIA [None]
